FAERS Safety Report 9127771 (Version 1)
Quarter: 2013Q1

REPORT INFORMATION
  Report Type: Spontaneous
  Country: US (occurrence: US)
  Receive Date: 20130228
  Receipt Date: 20130228
  Transmission Date: 20140127
  Serious: No
  Sender: FDA-Public Use
  Company Number: US-GLAXOSMITHKLINE-A0998634A

PATIENT
  Sex: Male

DRUGS (3)
  1. LAMICTAL [Suspect]
     Indication: PRODUCT USED FOR UNKNOWN INDICATION
     Dosage: 200MG AT NIGHT
     Route: 065
  2. SEROQUEL [Suspect]
     Dosage: 900MG AT NIGHT
  3. WELLBUTRIN XL [Concomitant]

REACTIONS (6)
  - Movement disorder [Not Recovered/Not Resolved]
  - Headache [Unknown]
  - Dysphagia [Unknown]
  - Dizziness [Unknown]
  - Blood pressure increased [Unknown]
  - Orthopnoea [Unknown]
